FAERS Safety Report 6528609-X (Version None)
Quarter: 2010Q1

REPORT INFORMATION
  Report Type: 
  Country: None (occurrence: None)
  Receive Date: 20100105
  Receipt Date: 20100105
  Transmission Date: 20100710
  Serious: Yes (Life-Threatening)
  Sender: FDA-Public Use
  Company Number: None

PATIENT
  Age: 51 Year
  Sex: Male
  Weight: 97.5234 kg

DRUGS (1)
  1. WALGREENS ALL DAY PAIN RELIEF CAPLETS 220 MG. WALGREENS [Suspect]
     Indication: BACK PAIN
     Dosage: 2 CAPLETS ONCE PO
     Route: 048
     Dates: start: 20100101, end: 20100101

REACTIONS (12)
  - ABDOMINAL PAIN [None]
  - COUGH [None]
  - DIARRHOEA [None]
  - ERYTHEMA [None]
  - GASTROINTESTINAL INFLAMMATION [None]
  - GASTROINTESTINAL PAIN [None]
  - LYMPHADENOPATHY [None]
  - PARAESTHESIA [None]
  - PRURITUS [None]
  - RHINORRHOEA [None]
  - SNEEZING [None]
  - VOMITING [None]
